FAERS Safety Report 5537009-0 (Version None)
Quarter: 2007Q4

REPORT INFORMATION
  Report Type: 
  Country: None (occurrence: None)
  Receive Date: 20071204
  Receipt Date: 20071116
  Transmission Date: 20080405
  Serious: Yes (Life-Threatening, Hospitalization)
  Sender: FDA-Public Use
  Company Number: STI-2007-01889

PATIENT
  Age: 80 Year
  Sex: Male

DRUGS (2)
  1. 222A ERYTHROMYCIN TOPICAL (UNSPECIFIED) (ERYTHROMYCIN TOPICAL) (ERYTHR [Suspect]
  2. SIMVASTATIN [Suspect]
     Route: 048

REACTIONS (5)
  - ASPARTATE AMINOTRANSFERASE INCREASED [None]
  - DRUG INTERACTION [None]
  - HAEMODIALYSIS [None]
  - RENAL FAILURE [None]
  - RHABDOMYOLYSIS [None]
